FAERS Safety Report 7561278-9 (Version None)
Quarter: 2011Q2

REPORT INFORMATION
  Report Type: 
  Country: None (occurrence: None)
  Receive Date: 20110621
  Receipt Date: 20110105
  Transmission Date: 20111010
  Serious: No
  Sender: FDA-Public Use
  Company Number: US-ASTRAZENECA-2011SE00640

PATIENT
  Sex: Female

DRUGS (1)
  1. PULMICORT FLEXHALER [Suspect]
     Indication: DYSPNOEA
     Route: 055

REACTIONS (6)
  - DRUG INEFFECTIVE [None]
  - PAIN [None]
  - PULMONARY CONGESTION [None]
  - LIGAMENT SPRAIN [None]
  - FOREIGN BODY [None]
  - COUGH [None]
